FAERS Safety Report 10959525 (Version 4)
Quarter: 2015Q2

REPORT INFORMATION
  Report Type: Report from Study
  Country: DE (occurrence: DE)
  Receive Date: 20150327
  Receipt Date: 20150521
  Transmission Date: 20150821
  Serious: Yes (Other)
  Sender: FDA-Public Use
  Company Number: DE-BEH-2014047227

PATIENT
  Age: 79 Year
  Sex: Male
  Weight: 80 kg

DRUGS (8)
  1. PRIVIGEN [Suspect]
     Active Substance: HUMAN IMMUNOGLOBULIN G
     Indication: HYPOGAMMAGLOBULINAEMIA
     Dosage: INFUSION RATE: MIN. 0.4 ML/MIN., MAX. 1.66 ML/MIN
     Route: 042
     Dates: start: 20141001, end: 20141001
  2. TRYASOL [Concomitant]
     Indication: COUGH
     Dosage: START DATE ??-FEB-2015
     Route: 048
  3. PRIVIGEN [Suspect]
     Active Substance: HUMAN IMMUNOGLOBULIN G
     Dosage: INFUSION RATE 0.66 ML/MIN 9.6 ML/MIN
     Dates: start: 20150226, end: 20150226
  4. CANDENSARTAN [Concomitant]
  5. PANTOZOL [Concomitant]
     Active Substance: PANTOPRAZOLE SODIUM
     Indication: PROPHYLAXIS
     Route: 048
  6. FELODIPIN [Concomitant]
     Active Substance: FELODIPINE
  7. PRIVIGEN [Suspect]
     Active Substance: HUMAN IMMUNOGLOBULIN G
     Dosage: INFUSION RATE MINIMUM: 0.66 ML/MIN, MAXIMUM: 2.66 ML/MIN
     Route: 042
     Dates: start: 20141030, end: 20141030
  8. PRIVIGEN [Suspect]
     Active Substance: HUMAN IMMUNOGLOBULIN G
     Dates: start: 20141127, end: 20141127

REACTIONS (14)
  - Chills [Recovered/Resolved]
  - Cough [Recovered/Resolved]
  - Pneumonia [Recovered/Resolved]
  - Chills [Recovered/Resolved]
  - Upper respiratory tract infection [Recovered/Resolved]
  - Drug intolerance [Unknown]
  - Hypersensitivity [Recovered/Resolved]
  - Drug ineffective [Unknown]
  - Dizziness [Recovered/Resolved]
  - Hypotension [Recovered/Resolved]
  - Nasopharyngitis [Recovered/Resolved]
  - Vertigo [Recovered/Resolved]
  - Dry mouth [Recovered/Resolved]
  - Dyspnoea [Recovered/Resolved]

NARRATIVE: CASE EVENT DATE: 20141030
